FAERS Safety Report 13183452 (Version 1)
Quarter: 2017Q1

REPORT INFORMATION
  Report Type: Spontaneous
  Country: CA (occurrence: CA)
  Receive Date: 20170203
  Receipt Date: 20170203
  Transmission Date: 20170428
  Serious: Yes (Other)
  Sender: FDA-Public Use
  Company Number: CA-TEVA-734761ACC

PATIENT
  Age: 47 Year
  Sex: Female
  Weight: 63.56 kg

DRUGS (4)
  1. CLONAZEPAM. [Concomitant]
     Active Substance: CLONAZEPAM
  2. SYNTHROID [Concomitant]
     Active Substance: LEVOTHYROXINE SODIUM
  3. TEVA-HYDROCHLOROTHIAZIDE [Suspect]
     Active Substance: HYDROCHLOROTHIAZIDE
     Indication: HYPERTENSION
     Dosage: 1 DOSAGE FORMS DAILY;
     Route: 048
  4. COVERSYL [Concomitant]
     Active Substance: PERINDOPRIL

REACTIONS (17)
  - Chest pain [Recovering/Resolving]
  - Asthma [Recovering/Resolving]
  - Blood pressure fluctuation [Recovering/Resolving]
  - Depression [Recovering/Resolving]
  - Pain in extremity [Recovering/Resolving]
  - Agitation [Recovering/Resolving]
  - Hyperhidrosis [Recovering/Resolving]
  - Presyncope [Recovering/Resolving]
  - Constipation [Recovering/Resolving]
  - Galactorrhoea [Recovering/Resolving]
  - Lung disorder [Recovering/Resolving]
  - Anxiety [Recovering/Resolving]
  - Decreased appetite [Recovering/Resolving]
  - Weight decreased [Recovering/Resolving]
  - Serotonin syndrome [Recovering/Resolving]
  - Chills [Recovering/Resolving]
  - Dyspnoea [Recovering/Resolving]
